FAERS Safety Report 18128888 (Version 1)
Quarter: 2020Q3

REPORT INFORMATION
  Report Type: Spontaneous
  Country: US (occurrence: US)
  Receive Date: 20200810
  Receipt Date: 20200810
  Transmission Date: 20201103
  Serious: No
  Sender: FDA-Public Use
  Company Number: US-PFIZER INC-2020296674

PATIENT
  Age: 72 Year
  Sex: Female
  Weight: 122.47 kg

DRUGS (3)
  1. METHOTREXATE SODIUM. [Suspect]
     Active Substance: METHOTREXATE SODIUM
     Indication: PSORIATIC ARTHROPATHY
     Dosage: 15 MG, WEEKLY (2.5 MG, ORAL, 6 TABLETS EVERY WEEK)
     Route: 048
  2. FENOFIBRATE. [Concomitant]
     Active Substance: FENOFIBRATE
     Dosage: UNK
  3. WARFARIN [Concomitant]
     Active Substance: WARFARIN
     Indication: THROMBOSIS
     Dosage: UNK

REACTIONS (5)
  - Pyrexia [Unknown]
  - Somnolence [Unknown]
  - Headache [Unknown]
  - Nausea [Recovering/Resolving]
  - Illness [Unknown]
